FAERS Safety Report 9593144 (Version 2)
Quarter: 2013Q4

REPORT INFORMATION
  Report Type: Spontaneous
  Country: US (occurrence: US)
  Receive Date: 20131004
  Receipt Date: 20131011
  Transmission Date: 20140711
  Serious: Yes (Life-Threatening, Hospitalization, Other)
  Sender: FDA-Public Use
  Company Number: US-PFIZER INC-2013281754

PATIENT
  Age: 14 Year
  Sex: Female
  Weight: 61.1 kg

DRUGS (4)
  1. IBUPROFEN [Suspect]
     Dosage: UNK
     Route: 065
     Dates: start: 20130710, end: 20130710
  2. CITALOPRAM [Suspect]
     Dosage: UNK
     Route: 065
     Dates: start: 20130710
  3. DICYCLOMINE [Suspect]
     Dosage: UNK
     Route: 065
     Dates: start: 20130710
  4. PENTASA [Suspect]
     Dosage: UNK
     Route: 065
     Dates: start: 20130710

REACTIONS (3)
  - Suicide attempt [Recovered/Resolved]
  - Intentional self-injury [Recovered/Resolved]
  - Vomiting [Unknown]
